FAERS Safety Report 16388049 (Version 4)
Quarter: 2019Q3

REPORT INFORMATION
  Report Type: Spontaneous
  Country: US (occurrence: US)
  Receive Date: 20190604
  Receipt Date: 20190711
  Transmission Date: 20191004
  Serious: No
  Sender: FDA-Public Use
  Company Number: PHEH2019US023149

PATIENT
  Sex: Female

DRUGS (3)
  1. AFINITOR [Suspect]
     Active Substance: EVEROLIMUS
     Dosage: 5 MG, QD
     Route: 048
  2. AFINITOR [Suspect]
     Active Substance: EVEROLIMUS
     Indication: RENAL CELL CARCINOMA
     Dosage: 5 MG, QD
     Route: 048
  3. LENVATINIB [Suspect]
     Active Substance: LENVATINIB
     Indication: RENAL CELL CARCINOMA
     Dosage: 18 MG, QD
     Route: 048

REACTIONS (9)
  - Gastrooesophageal reflux disease [Unknown]
  - Glossodynia [Unknown]
  - Decreased appetite [Unknown]
  - Pain in extremity [Unknown]
  - Arthritis [Unknown]
  - Feeding disorder [Unknown]
  - Nausea [Unknown]
  - Oral disorder [Unknown]
  - Stomatitis [Unknown]
